FAERS Safety Report 8303192-7 (Version None)
Quarter: 2012Q2

REPORT INFORMATION
  Report Type: 
  Country: None (occurrence: None)
  Receive Date: 20120423
  Receipt Date: 20120411
  Transmission Date: 20120825
  Serious: No
  Sender: FDA-Public Use
  Company Number: US-BIOGENIDEC-2012BI010882

PATIENT
  Sex: Male

DRUGS (2)
  1. TYSABRI [Suspect]
     Indication: MULTIPLE SCLEROSIS
     Route: 042
     Dates: start: 20090915, end: 20110818
  2. TYSABRI [Suspect]
     Route: 042
     Dates: start: 20120215

REACTIONS (2)
  - HYPOAESTHESIA [None]
  - NEUROLOGICAL DECOMPENSATION [None]
